FAERS Safety Report 7333524-8 (Version None)
Quarter: 2011Q1

REPORT INFORMATION
  Report Type: 
  Country: None (occurrence: None)
  Receive Date: 20110304
  Receipt Date: 20110226
  Transmission Date: 20110831
  Serious: Yes (Other)
  Sender: FDA-Public Use
  Company Number: US-US-EMD SERONO, INC.-7044987

PATIENT
  Sex: Female
  Weight: 73 kg

DRUGS (5)
  1. VITAMIN D [Concomitant]
  2. AMBIEN [Concomitant]
     Indication: SLEEP DISORDER
     Dates: start: 20100927
  3. COLACE [Concomitant]
  4. ATIVAN [Concomitant]
  5. REBIF [Suspect]
     Indication: MULTIPLE SCLEROSIS
     Route: 058
     Dates: start: 20101101, end: 20101227

REACTIONS (2)
  - SELF-INJURIOUS IDEATION [None]
  - SUICIDAL IDEATION [None]
